FAERS Safety Report 22302194 (Version 5)
Quarter: 2023Q2

REPORT INFORMATION
  Report Type: Spontaneous
  Country: ES (occurrence: ES)
  Receive Date: 20230510
  Receipt Date: 20230627
  Transmission Date: 20230721
  Serious: Yes (Other)
  Sender: FDA-Public Use
  Company Number: ES-JNJFOC-20230441088

PATIENT
  Age: 47 Year
  Sex: Male

DRUGS (9)
  1. ZYTIGA [Suspect]
     Active Substance: ABIRATERONE ACETATE
     Indication: Prostate cancer stage IV
     Dosage: 250 MILLIGRAMS, OVER 2 DAYS IN ORDER TO ACHIEVE A TOTAL DOSE OF 1000MG
     Route: 048
  2. ZYTIGA [Suspect]
     Active Substance: ABIRATERONE ACETATE
     Indication: Prostate cancer stage IV
     Route: 048
     Dates: start: 2019
  3. ZYTIGA [Suspect]
     Active Substance: ABIRATERONE ACETATE
     Dosage: 250 MILLIGRAM, UNK; ACHIEVE A TOTAL DOSE OF 1000 MG
     Route: 048
     Dates: start: 2019
  4. ZYTIGA [Suspect]
     Active Substance: ABIRATERONE ACETATE
     Dosage: ORAL ABIRATERONE-ACETATE 1000MG WAS PERFORMED
     Route: 048
  5. ENZALUTAMIDE [Suspect]
     Active Substance: ENZALUTAMIDE
     Indication: Prostate cancer stage IV
     Route: 065
     Dates: start: 202112
  6. PREDNISOLONE [Concomitant]
     Active Substance: PREDNISOLONE
     Indication: Premedication
     Dosage: 15 MILLIGRAM, BID
     Route: 065
  7. PREDNISOLONE [Concomitant]
     Active Substance: PREDNISOLONE
     Dosage: 5 MILLIGRAM, BID
     Route: 065
  8. EBASTINE [Concomitant]
     Active Substance: EBASTINE
     Indication: Premedication
     Dosage: 20 MILLIGRAM, OD
     Route: 065
  9. PREDNISONE [Concomitant]
     Active Substance: PREDNISONE
     Indication: Premedication
     Dosage: 20 MILLIGRAM, OD
     Route: 065

REACTIONS (7)
  - Type IV hypersensitivity reaction [Unknown]
  - Drug eruption [Unknown]
  - Hypersensitivity [Recovering/Resolving]
  - Prurigo [Unknown]
  - Eyelid oedema [Unknown]
  - Pyrexia [Unknown]
  - Rash morbilliform [Unknown]
